FAERS Safety Report 9843113 (Version 1)
Quarter: 2013Q4

REPORT INFORMATION
  Report Type: Spontaneous
  Country: US (occurrence: None)
  Receive Date: 20131219
  Receipt Date: 20131219
  Transmission Date: 20140711
  Serious: Yes (Death, Other)
  Sender: FDA-Public Use
  Company Number: 163-20785-13071458

PATIENT
  Age: 66 Year
  Sex: Female
  Weight: 102.06 kg

DRUGS (14)
  1. THALOMID [Suspect]
     Indication: GASTRIC ANTRAL VASCULAR ECTASIA
     Route: 048
     Dates: start: 20121207
  2. REQUIP (ROPINIROLE HYDROCHLORIDE) (1 MILLIGRAM, TABLETS) [Concomitant]
  3. EFFEXOR (VENLAFAXINE HYDROCHLORIDE) (100 MILLIGRAM, TABLETS) [Concomitant]
  4. FUROSEMIDE (FUROSEMIDE) (20 MILLIGRAM, TABLETS) [Concomitant]
  5. TRAMADOL HCL [Concomitant]
  6. GABAPENTIN (GABAPENTIN) [Concomitant]
  7. NADOLOL (NADOLOL) (20 MILLIGRAM, TABLETS) [Concomitant]
  8. OMEPRAZOLE (OMEPRAZOLE) [Concomitant]
  9. FENTANYL (FENTANYL) [Concomitant]
  10. DOXYCYCLINE MONOHYDRATE (DOXYCYCLINE MONOHYDRATE) [Concomitant]
  11. NYSTATIN (NYSTATIN) [Concomitant]
  12. HYDROCODONE (HYDROCODONE) [Concomitant]
  13. STOOL SOFTENER (STOOL SOFTENER) [Concomitant]
  14. LIDODERM (LIDOCAINE) (POULTICE OR PATCH) [Concomitant]

REACTIONS (5)
  - B-cell lymphoma [None]
  - Disease progression [None]
  - Lymphadenopathy [None]
  - Paraesthesia [None]
  - Hypoaesthesia [None]
